FAERS Safety Report 5786247-0 (Version None)
Quarter: 2008Q2

REPORT INFORMATION
  Report Type: 
  Country: None (occurrence: None)
  Receive Date: 20080624
  Receipt Date: 20080611
  Transmission Date: 20081010
  Serious: Yes (Hospitalization)
  Sender: FDA-Public Use
  Company Number: US-ELI_LILLY_AND_COMPANY-US200806003199

PATIENT
  Age: 33 Year
  Sex: Male

DRUGS (3)
  1. CYMBALTA [Suspect]
     Indication: MAJOR DEPRESSION
     Dates: start: 20080604
  2. LAMICTAL [Concomitant]
     Dosage: 50 MG, UNK
     Dates: start: 20080604
  3. TRAZODONE HCL [Concomitant]
     Dates: start: 20080604

REACTIONS (7)
  - ABNORMAL BEHAVIOUR [None]
  - ANXIETY [None]
  - BLOOD CREATININE ABNORMAL [None]
  - BLOOD UREA INCREASED [None]
  - CRYING [None]
  - HOSPITALISATION [None]
  - WEIGHT DECREASED [None]
